FAERS Safety Report 23230893 (Version 1)
Quarter: 2023Q4

REPORT INFORMATION
  Report Type: Spontaneous
  Country: US (occurrence: None)
  Receive Date: 20231124
  Receipt Date: 20231124
  Transmission Date: 20240110
  Serious: Yes (Other)
  Sender: FDA-Public Use
  Company Number: None

PATIENT
  Age: 41 Year
  Sex: Male
  Weight: 103.95 kg

DRUGS (16)
  1. CHANTIX [Suspect]
     Active Substance: VARENICLINE TARTRATE
     Indication: Smoking cessation therapy
     Dosage: OTHER QUANTITY : 1 TABLET(S);?FREQUENCY : TWICE A DAY;?
     Route: 048
     Dates: start: 20231025, end: 20231112
  2. FLUOXETINE HYDROCHLORIDE [Concomitant]
     Active Substance: FLUOXETINE HYDROCHLORIDE
  3. pepcid ac 20 mg [Concomitant]
  4. MONTELUKAST SODIUM [Concomitant]
     Active Substance: MONTELUKAST SODIUM
  5. dexlansoprazole 60 mg [Concomitant]
  6. ATORVASTATIN [Concomitant]
     Active Substance: ATORVASTATIN
  7. GABAPENTIN [Concomitant]
     Active Substance: GABAPENTIN
  8. vistaril 50 mg [Concomitant]
  9. SILDENAFIL [Concomitant]
     Active Substance: SILDENAFIL
  10. VITAMINS [Concomitant]
     Active Substance: VITAMINS
  11. vitamin E 180 mg [Concomitant]
  12. vitamin D 125 mcg 5000 IU [Concomitant]
  13. Zinc 50 mg [Concomitant]
  14. tumes [Concomitant]
  15. gaviscon [Concomitant]
  16. 10 mg melatonin [Concomitant]

REACTIONS (6)
  - Depression [None]
  - Anxiety [None]
  - Malaise [None]
  - Panic attack [None]
  - Abnormal behaviour [None]
  - Paranoia [None]

NARRATIVE: CASE EVENT DATE: 20231119
